FAERS Safety Report 6429490-X (Version None)
Quarter: 2009Q4

REPORT INFORMATION
  Report Type: 
  Country: None (occurrence: None)
  Receive Date: 20091105
  Receipt Date: 20090924
  Transmission Date: 20100525
  Serious: No
  Sender: FDA-Public Use
  Company Number: US-ABBOTT-09P-163-0599642-00

PATIENT
  Sex: Male

DRUGS (2)
  1. KALETRA [Suspect]
     Indication: HIV INFECTION
     Dosage: TWO TABLETS TWICE A DAY
     Dates: start: 20040101
  2. COMBIVIR [Concomitant]
     Indication: HIV INFECTION
     Dates: start: 20040101

REACTIONS (1)
  - DIARRHOEA [None]
